FAERS Safety Report 8533049 (Version 2)
Quarter: 2015Q2

REPORT INFORMATION
  Report Type: Report from Study
  Country: ZA (occurrence: ZA)
  Receive Date: 20120427
  Receipt Date: 20150531
  Transmission Date: 20150821
  Serious: Yes (Hospitalization, Other)
  Sender: FDA-Public Use
  Company Number: PHHY2012ZA035041

PATIENT
  Sex: Female

DRUGS (2)
  1. ACLASTA [Suspect]
     Active Substance: ZOLEDRONIC ACID
     Indication: OSTEOPOROSIS
  2. ACLASTA [Suspect]
     Active Substance: ZOLEDRONIC ACID
     Indication: PELVIC FRACTURE
     Dosage: 5 MG/ 100 ML, YEARLY
     Route: 042
     Dates: start: 201102

REACTIONS (4)
  - Rib fracture [Unknown]
  - Musculoskeletal chest pain [Unknown]
  - Fall [Unknown]
  - Traumatic lung injury [Unknown]
